FAERS Safety Report 23714863 (Version 3)
Quarter: 2024Q2

REPORT INFORMATION
  Report Type: Report from Study
  Country: CZ (occurrence: CZ)
  Receive Date: 20240406
  Receipt Date: 20240510
  Transmission Date: 20240716
  Serious: Yes (Death)
  Sender: FDA-Public Use
  Company Number: CZ-ABBVIE-5708283

PATIENT
  Age: 70 Year
  Sex: Male
  Weight: 72 kg

DRUGS (4)
  1. CARBIDOPA\LEVODOPA [Suspect]
     Active Substance: CARBIDOPA\LEVODOPA
     Indication: Parkinson^s disease
     Dosage: FORM STRENGTH: 20 MILLIGRAM/MILLILITERS
     Route: 050
     Dates: end: 20240401
  2. CARBIDOPA\LEVODOPA [Suspect]
     Active Substance: CARBIDOPA\LEVODOPA
  3. FOLIC ACID [Concomitant]
     Active Substance: FOLIC ACID
     Indication: Nervous system disorder prophylaxis
     Dosage: FORM STRENGTH: 10 MILLIGRAM?FREQUENCY TEXT: 1-0-0
     Route: 048
  4. B komplex [Concomitant]
     Indication: Nervous system disorder prophylaxis
     Dosage: FREQUENCY TEXT: 1-0-0
     Route: 048

REACTIONS (1)
  - Death [Fatal]

NARRATIVE: CASE EVENT DATE: 20240401
